FAERS Safety Report 8554880-9 (Version None)
Quarter: 2012Q3

REPORT INFORMATION
  Report Type: 
  Country: None (occurrence: None)
  Receive Date: 20120731
  Receipt Date: 20120725
  Transmission Date: 20120928
  Serious: Yes (Other)
  Sender: FDA-Public Use
  Company Number: US-PFIZER INC-2012180046

PATIENT
  Sex: Female

DRUGS (2)
  1. REVATIO [Suspect]
     Indication: PULMONARY HYPERTENSION
     Dosage: 10 MG, 2X/DAY
     Dates: start: 20120712
  2. REVATIO [Suspect]
     Dosage: 10 MG, 1X/DAY

REACTIONS (1)
  - FALL [None]
